FAERS Safety Report 7109224-6 (Version None)
Quarter: 2010Q4

REPORT INFORMATION
  Report Type: 
  Country: None (occurrence: None)
  Receive Date: 20101117
  Receipt Date: 20101105
  Transmission Date: 20110411
  Serious: Yes (Other)
  Sender: FDA-Public Use
  Company Number: ES-ELI_LILLY_AND_COMPANY-ES201011001735

PATIENT
  Sex: Female
  Weight: 70 kg

DRUGS (15)
  1. FORTEO [Suspect]
     Indication: OSTEOPOROSIS
     Dosage: 20 UG, DAILY (1/D)
     Route: 058
     Dates: start: 20091105, end: 20100721
  2. FORTEO [Suspect]
     Dosage: 20 UG, DAILY (1/D)
     Route: 058
     Dates: start: 20100901
  3. ENCORT [Concomitant]
     Indication: ARRHYTHMIA
     Dosage: 5.5 MG, OTHER (EVERY 48 HS)
     Route: 048
     Dates: start: 20100701
  4. PREVENCOR [Concomitant]
     Indication: DYSLIPIDAEMIA
     Dosage: 10 MG, DAILY (1/D)
     Route: 048
     Dates: start: 20100701
  5. DEPRAX [Concomitant]
     Indication: INSOMNIA
     Dosage: 100 MG, DAILY (1/D)
     Route: 048
     Dates: start: 20000101
  6. TIADIPONA [Concomitant]
     Indication: DEPRESSION
     Dosage: 75 MG, DAILY (1/D)
     Route: 048
     Dates: start: 20000101
  7. PARAPRES [Concomitant]
     Indication: HYPERTENSION
     Dosage: 36 MG, DAILY (1/D)
     Route: 048
     Dates: start: 20100701
  8. ASPIRIN [Concomitant]
     Dosage: 100 MG, DAILY (1/D)
     Route: 048
  9. DAFLON [Concomitant]
     Dosage: 2 D/F, DAILY (1/D)
     Route: 048
  10. FUROSEMIDA                         /00032601/ [Concomitant]
     Indication: DIURETIC THERAPY
     Dosage: 60 MG, DAILY (1/D)
     Route: 048
     Dates: start: 20100701
  11. OSVICAL D [Concomitant]
     Indication: OSTEOPOROSIS
     Dosage: 1200 MG, DAILY (1/D)
     Route: 048
  12. NEXIUM [Concomitant]
     Dosage: 20 MG, DAILY (1/D)
     Route: 048
  13. ZALDIAR [Concomitant]
     Indication: ANALGESIC THERAPY
     Dosage: 2 D/F, DAILY (1/D)
     Route: 048
  14. VISCOFRESH [Concomitant]
     Indication: CATARACT
     Dosage: UNK, 2/D
     Route: 047
  15. SICCAFLUID [Concomitant]
     Indication: CATARACT
     Dosage: 2 D/F, AS NEEDED
     Route: 047

REACTIONS (1)
  - INGUINAL HERNIA [None]
